FAERS Safety Report 24696102 (Version 1)
Quarter: 2024Q4

REPORT INFORMATION
  Report Type: Spontaneous
  Country: RO (occurrence: RO)
  Receive Date: 20241204
  Receipt Date: 20241204
  Transmission Date: 20250115
  Serious: Yes (Life-Threatening, Hospitalization)
  Sender: ACCORD
  Company Number: RO-MLMSERVICE-20241118-PI261308-00249-1

PATIENT
  Age: 44 Year
  Sex: Female

DRUGS (2)
  1. OXALIPLATIN [Suspect]
     Active Substance: OXALIPLATIN
     Indication: Colon cancer
     Dosage: HYPERTHERMIC INTRAPERITONEAL CHEMOTHERAPY (HIPEC) USING OXALIPLATIN 600 MG, A PLATINUM-BASED CHEMOT
     Dates: start: 2021
  2. OXALIPLATIN [Suspect]
     Active Substance: OXALIPLATIN
     Indication: Metastases to peritoneum
     Dosage: HYPERTHERMIC INTRAPERITONEAL CHEMOTHERAPY (HIPEC) USING OXALIPLATIN 600 MG, A PLATINUM-BASED
     Dates: start: 2021

REACTIONS (3)
  - Stress cardiomyopathy [Recovered/Resolved]
  - Cardiac arrest [Recovered/Resolved]
  - Pulmonary oedema [Recovered/Resolved]

NARRATIVE: CASE EVENT DATE: 20210101
